FAERS Safety Report 15619350 (Version 1)
Quarter: 2018Q4

REPORT INFORMATION
  Report Type: Spontaneous
  Country: US (occurrence: US)
  Receive Date: 20181115
  Receipt Date: 20181115
  Transmission Date: 20190205
  Serious: No
  Sender: FDA-Public Use
  Company Number: US-SHIRE-US201843372

PATIENT
  Sex: Female

DRUGS (1)
  1. NATPARA (PARATHYROID HORMONE) [Suspect]
     Active Substance: PARATHYROID HORMONE
     Indication: PRODUCT USED FOR UNKNOWN INDICATION
     Dosage: 25 UNK, 1X/DAY:QD
     Route: 065
     Dates: start: 20151105, end: 20180924

REACTIONS (2)
  - Aortic valve calcification [Recovered/Resolved]
  - Neck mass [Recovered/Resolved]
